FAERS Safety Report 6581398-5 (Version None)
Quarter: 2010Q1

REPORT INFORMATION
  Report Type: 
  Country: None (occurrence: None)
  Receive Date: 20100215
  Receipt Date: 20100205
  Transmission Date: 20100710
  Serious: Yes (Other)
  Sender: FDA-Public Use
  Company Number: CHPA2010JP02805

PATIENT
  Sex: Male

DRUGS (1)
  1. NICOTINELL TTS (NCH) [Suspect]
     Dosage: 35 MG, QD
     Route: 062
     Dates: start: 20091001, end: 20091001

REACTIONS (2)
  - EPILEPSY [None]
  - FEELING ABNORMAL [None]
